FAERS Safety Report 18452013 (Version 2)
Quarter: 2020Q4

REPORT INFORMATION
  Report Type: Spontaneous
  Country: IT (occurrence: IT)
  Receive Date: 20201102
  Receipt Date: 20201113
  Transmission Date: 20210114
  Serious: Yes (Hospitalization, Other)
  Sender: FDA-Public Use
  Company Number: IT-ACCORD-206913

PATIENT
  Age: 80 Year
  Sex: Female

DRUGS (10)
  1. PANTOPRAZOLE [Concomitant]
     Active Substance: PANTOPRAZOLE
  2. AMOXICILLIN/CLAVULANIC ACID [Concomitant]
     Active Substance: AMOXICILLIN\CLAVULANIC ACID
     Route: 048
  3. DOXAZOSIN [Concomitant]
     Active Substance: DOXAZOSIN MESYLATE
  4. METHOTREXATE. [Suspect]
     Active Substance: METHOTREXATE
     Indication: PEMPHIGOID
     Route: 058
  5. INSULIN [Concomitant]
     Active Substance: INSULIN NOS
     Indication: TYPE 2 DIABETES MELLITUS
  6. SIMVASTATIN. [Concomitant]
     Active Substance: SIMVASTATIN
  7. TELMISARTAN. [Concomitant]
     Active Substance: TELMISARTAN
  8. ACETYLSALICYLIC ACID [Concomitant]
     Active Substance: ASPIRIN
  9. ENOXAPARIN [Concomitant]
     Active Substance: ENOXAPARIN
  10. LINAGLIPTIN [Concomitant]
     Active Substance: LINAGLIPTIN
     Indication: TYPE 2 DIABETES MELLITUS

REACTIONS (5)
  - Pleural effusion [Recovering/Resolving]
  - Agranulocytosis [Recovering/Resolving]
  - Off label use [Unknown]
  - Pyrexia [Recovering/Resolving]
  - Oral candidiasis [Recovering/Resolving]
